FAERS Safety Report 12631415 (Version 2)
Quarter: 2016Q3

REPORT INFORMATION
  Report Type: Spontaneous
  Country: US (occurrence: US)
  Receive Date: 20160808
  Receipt Date: 20160808
  Transmission Date: 20161109
  Serious: No
  Sender: FDA-Public Use
  Company Number: US-BEH-2015053791

PATIENT
  Sex: Female
  Weight: 46 kg

DRUGS (14)
  1. HIZENTRA [Suspect]
     Active Substance: HUMAN IMMUNOGLOBULIN G
     Route: 058
  2. ZANAFLEX [Concomitant]
     Active Substance: TIZANIDINE HYDROCHLORIDE
  3. KEPPRA [Concomitant]
     Active Substance: LEVETIRACETAM
  4. PROTONIX [Concomitant]
     Active Substance: PANTOPRAZOLE SODIUM
  5. HIZENTRA [Suspect]
     Active Substance: HUMAN IMMUNOGLOBULIN G
     Indication: IMMUNODEFICIENCY COMMON VARIABLE
     Route: 058
  6. METHYLPREDNISOLONE. [Concomitant]
     Active Substance: METHYLPREDNISOLONE
  7. NORVASC [Concomitant]
     Active Substance: AMLODIPINE BESYLATE
  8. RESTORIL [Concomitant]
     Active Substance: TEMAZEPAM
  9. MORPHINE [Concomitant]
     Active Substance: MORPHINE
  10. ROXICODONE [Concomitant]
     Active Substance: OXYCODONE HYDROCHLORIDE
  11. XANAX [Concomitant]
     Active Substance: ALPRAZOLAM
  12. RESTASIS [Concomitant]
     Active Substance: CYCLOSPORINE
  13. ASPIRIN. [Concomitant]
     Active Substance: ASPIRIN
  14. VITAMIN D1 [Concomitant]

REACTIONS (2)
  - Rash [Unknown]
  - Pruritus [Unknown]
